FAERS Safety Report 8488087-0 (Version None)
Quarter: 2012Q3

REPORT INFORMATION
  Report Type: 
  Country: None (occurrence: None)
  Receive Date: 20120705
  Receipt Date: 20120628
  Transmission Date: 20120928
  Serious: Yes (Other)
  Sender: FDA-Public Use
  Company Number: US-PFIZER INC-2012156753

PATIENT
  Sex: Male
  Weight: 88.9 kg

DRUGS (4)
  1. LOMOTIL [Concomitant]
     Indication: DIARRHOEA
     Dosage: UNK
  2. SUTENT [Suspect]
     Indication: RENAL CELL CARCINOMA
     Dosage: UNK
     Dates: start: 20110830
  3. PREDNISONE [Concomitant]
     Indication: DIARRHOEA
     Dosage: UNK
  4. MEGACE [Concomitant]
     Indication: DECREASED APPETITE
     Dosage: UNK

REACTIONS (9)
  - FATIGUE [None]
  - FALL [None]
  - ASTHENIA [None]
  - HAEMOGLOBIN DECREASED [None]
  - BLOOD PRESSURE FLUCTUATION [None]
  - LOSS OF CONSCIOUSNESS [None]
  - RIB FRACTURE [None]
  - CONTUSION [None]
  - DEHYDRATION [None]
